FAERS Safety Report 14470355 (Version 3)
Quarter: 2018Q1

REPORT INFORMATION
  Report Type: Spontaneous
  Country: US (occurrence: US)
  Receive Date: 20180131
  Receipt Date: 20180307
  Transmission Date: 20180509
  Serious: Yes (Other)
  Sender: FDA-Public Use
  Company Number: US-PFIZER INC-2018041002

PATIENT
  Age: 41 Year
  Sex: Female
  Weight: 65.76 kg

DRUGS (7)
  1. ADVIL [Suspect]
     Active Substance: IBUPROFEN
     Indication: NASOPHARYNGITIS
     Dosage: 200 MG, UNK (TOOK ONE TIME)
  2. ADVIL [Suspect]
     Active Substance: IBUPROFEN
     Indication: BRONCHITIS
  3. ADVIL [Suspect]
     Active Substance: IBUPROFEN
     Indication: HEADACHE
  4. ADVIL [Suspect]
     Active Substance: IBUPROFEN
     Indication: PAIN
  5. ADVIL [Suspect]
     Active Substance: IBUPROFEN
     Indication: COUGH
  6. ADVIL [Suspect]
     Active Substance: IBUPROFEN
     Indication: PYREXIA
  7. ZOLOFT [Concomitant]
     Active Substance: SERTRALINE HYDROCHLORIDE
     Dosage: 100 MG, UNK
     Dates: start: 2005

REACTIONS (5)
  - Drug ineffective [Recovered/Resolved]
  - Sweating fever [Recovered/Resolved]
  - Malaise [Unknown]
  - Weight decreased [Unknown]
  - Urticaria [Unknown]

NARRATIVE: CASE EVENT DATE: 20180126
